FAERS Safety Report 16451985 (Version 7)
Quarter: 2020Q3

REPORT INFORMATION
  Report Type: Report from Study
  Country: MX (occurrence: MX)
  Receive Date: 20190619
  Receipt Date: 20200929
  Transmission Date: 20201102
  Serious: Yes (Hospitalization, Other)
  Sender: FDA-Public Use
  Company Number: MX-BAYER-2019-116141

PATIENT
  Age: 67 Year
  Sex: Male

DRUGS (3)
  1. NEXAVAR [Suspect]
     Active Substance: SORAFENIB
     Indication: HEPATOCELLULAR CARCINOMA
     Dosage: 400 MG, BID
     Dates: start: 20190413
  2. NEXAVAR [Suspect]
     Active Substance: SORAFENIB
     Indication: HEPATOCELLULAR CARCINOMA
     Dosage: 400 MG, BID ( 2 TABLETS EVERY 12 HOURS)
     Dates: start: 202002
  3. NEXAVAR [Suspect]
     Active Substance: SORAFENIB
     Indication: HEPATOCELLULAR CARCINOMA
     Dosage: 200 MG, BID
     Route: 048
     Dates: end: 20200801

REACTIONS (20)
  - Burn of internal organs [Recovering/Resolving]
  - Oropharyngeal pain [Not Recovered/Not Resolved]
  - Abdominal pain upper [Not Recovered/Not Resolved]
  - Pruritus [Not Recovered/Not Resolved]
  - Palmar-plantar erythrodysaesthesia syndrome [Not Recovered/Not Resolved]
  - Off label use [None]
  - Burn oral cavity [Recovering/Resolving]
  - Mouth haemorrhage [None]
  - Decreased appetite [Not Recovered/Not Resolved]
  - Feeding disorder [None]
  - Decreased appetite [Recovering/Resolving]
  - Pharyngeal haemorrhage [Recovering/Resolving]
  - Haemoptysis [Not Recovered/Not Resolved]
  - Oral pain [None]
  - Chest pain [Recovering/Resolving]
  - Tongue haemorrhage [Recovering/Resolving]
  - Gingival ulceration [Recovering/Resolving]
  - Cough [Not Recovered/Not Resolved]
  - Pyrexia [Not Recovered/Not Resolved]
  - Intentional product use issue [None]

NARRATIVE: CASE EVENT DATE: 201904
